FAERS Safety Report 5055558-9 (Version None)
Quarter: 2006Q3

REPORT INFORMATION
  Report Type: 
  Country: None (occurrence: None)
  Receive Date: 20060714
  Receipt Date: 20060627
  Transmission Date: 20061208
  Serious: Yes (Other)
  Sender: FDA-Public Use
  Company Number: US200606003040

PATIENT
  Age: 47 Year
  Sex: Male
  Weight: 104.3 kg

DRUGS (4)
  1. ZYPREXA [Suspect]
     Indication: SLEEP DISORDER
     Dosage: 10 MG, DAILY (1/D); SEE IMAGE
     Dates: start: 19990101, end: 20020101
  2. ZYPREXA [Suspect]
     Indication: SLEEP DISORDER
     Dosage: 10 MG, DAILY (1/D); SEE IMAGE
     Dates: start: 20020101, end: 20060401
  3. DEPAKOTE [Concomitant]
  4. WELLBUTRIN [Concomitant]

REACTIONS (11)
  - CONVULSION [None]
  - DIZZINESS [None]
  - DYSPEPSIA [None]
  - DYSPNOEA [None]
  - GASTRIC DISORDER [None]
  - HYPERTENSION [None]
  - LOSS OF CONSCIOUSNESS [None]
  - NERVE INJURY [None]
  - OEDEMA PERIPHERAL [None]
  - ORAL INTAKE REDUCED [None]
  - WEIGHT INCREASED [None]
